FAERS Safety Report 5765658-3 (Version None)
Quarter: 2008Q2

REPORT INFORMATION
  Report Type: 
  Country: None (occurrence: None)
  Receive Date: 20080609
  Receipt Date: 20080609
  Transmission Date: 20081010
  Serious: Yes (Other)
  Sender: FDA-Public Use
  Company Number: None

PATIENT
  Age: 26 Year
  Sex: Female
  Weight: 73.4827 kg

DRUGS (1)
  1. BUPROPION HCL [Suspect]
     Indication: SMOKING CESSATION THERAPY
     Dosage: 150MGS DAILY PO
     Route: 048
     Dates: start: 20080501, end: 20080530

REACTIONS (3)
  - PRURITUS [None]
  - RASH GENERALISED [None]
  - URTICARIA [None]
